FAERS Safety Report 8272017-0 (Version None)
Quarter: 2012Q2

REPORT INFORMATION
  Report Type: 
  Country: None (occurrence: None)
  Receive Date: 20120410
  Receipt Date: 20120328
  Transmission Date: 20120825
  Serious: Yes (Other)
  Sender: FDA-Public Use
  Company Number: CN-MYLANLABS-2012S1006932

PATIENT
  Age: 2 Year
  Sex: Male

DRUGS (3)
  1. SUFENTANIL CITRATE [Concomitant]
     Indication: URETHRAL OPERATION
     Dosage: 2 MICROG
     Route: 065
  2. TRAMADOL HCL [Suspect]
     Indication: POSTOPERATIVE ANALGESIA
     Dosage: OVERDOSE OF 0.75 MG/KG/H
     Route: 041
  3. GRANISETRON [Suspect]
     Indication: POSTOPERATIVE ANALGESIA
     Dosage: 0.125 MG/H
     Route: 041

REACTIONS (2)
  - CONVULSION [None]
  - OVERDOSE [None]
